FAERS Safety Report 5065611-1 (Version None)
Quarter: 2006Q3

REPORT INFORMATION
  Report Type: 
  Country: None (occurrence: None)
  Receive Date: 20060731
  Receipt Date: 20060718
  Transmission Date: 20061208
  Serious: Yes (Death)
  Sender: FDA-Public Use
  Company Number: PHBS2006GB10807

PATIENT
  Age: 59 Year
  Sex: Male

DRUGS (3)
  1. CYCLOSPORINE [Suspect]
     Indication: HEART TRANSPLANT
     Dosage: 100 MG, QD
     Dates: end: 20040101
  2. CYCLOSPORINE [Suspect]
     Dosage: 25 MG, BID
     Dates: start: 20040101
  3. AZATHIOPRINE [Suspect]
     Indication: HEART TRANSPLANT
     Dosage: 50 MG, BID
     Dates: end: 20040101

REACTIONS (3)
  - DRUG INEFFECTIVE [None]
  - LYMPHADENOPATHY [None]
  - LYMPHOPROLIFERATIVE DISORDER [None]
